FAERS Safety Report 19675893 (Version 1)
Quarter: 2021Q3

REPORT INFORMATION
  Report Type: Spontaneous
  Country: KE (occurrence: KE)
  Receive Date: 20210809
  Receipt Date: 20210809
  Transmission Date: 20211014
  Serious: Yes (Hospitalization)
  Sender: FDA-Public Use
  Company Number: KE-BRISTOL-MYERS SQUIBB COMPANY-BMS-2021-075143

PATIENT
  Age: 61 Year
  Sex: Female

DRUGS (1)
  1. SPRYCEL [Suspect]
     Active Substance: DASATINIB
     Indication: CHRONIC MYELOID LEUKAEMIA
     Dosage: CURRENT DOSAGE: 100MG (1 X 100MG TABLET)
     Route: 065

REACTIONS (2)
  - Blood disorder [Unknown]
  - COVID-19 [Unknown]
